FAERS Safety Report 8249228-3 (Version None)
Quarter: 2012Q1

REPORT INFORMATION
  Report Type: 
  Country: None (occurrence: None)
  Receive Date: 20120316
  Receipt Date: 20120308
  Transmission Date: 20120608
  Serious: Yes (Other)
  Sender: FDA-Public Use
  Company Number: 2011029371

PATIENT
  Age: 24 Month
  Sex: Male
  Weight: 14.9687 kg

DRUGS (14)
  1. HIZENTRA [Suspect]
     Indication: IMMUNODEFICIENCY COMMON VARIABLE
     Dosage: 2 G 1X/WEEK, 2 GM (10 ML) ON 2 SITES OVER 30 MINUTES SUBCUTANEOUS
     Route: 058
     Dates: start: 20120306, end: 20120306
  2. HIZENTRA [Suspect]
     Indication: IMMUNODEFICIENCY COMMON VARIABLE
     Dosage: 2 GM 10 ML VIAL SUBCUTANEOUS
     Route: 058
  3. MUCINEX [Concomitant]
  4. PREVACID [Concomitant]
  5. SINGULAIR [Concomitant]
  6. XOPENEX [Concomitant]
  7. XYZAL [Concomitant]
  8. NASONEX [Concomitant]
  9. DELSYM [Concomitant]
  10. XOPENEX [Concomitant]
  11. HIZENTRA [Suspect]
     Indication: IMMUNODEFICIENCY COMMON VARIABLE
     Dosage: 2 G 1X/WEEK, 2 GM 10 ML VIAL; 10 ML IN 2 SITES OVER 30 MINUTES SUBCUTANEOUS
     Route: 058
     Dates: start: 20100904
  12. HIZENTRA [Suspect]
     Indication: IMMUNODEFICIENCY COMMON VARIABLE
     Dosage: 2 GM 10 ML VIAL SUBCUTANEOUS
     Route: 058
     Dates: start: 20100904
  13. PULMICORT [Concomitant]
  14. ZYRTEC [Concomitant]

REACTIONS (4)
  - RESPIRATORY TRACT INFECTION [None]
  - PRODUCTIVE COUGH [None]
  - UPPER RESPIRATORY TRACT INFECTION [None]
  - SINUSITIS [None]
